FAERS Safety Report 21990708 (Version 1)
Quarter: 2023Q1

REPORT INFORMATION
  Report Type: Spontaneous
  Country: GB (occurrence: GB)
  Receive Date: 20230214
  Receipt Date: 20230214
  Transmission Date: 20230418
  Serious: Yes (Other)
  Sender: FDA-Public Use
  Company Number: None

PATIENT
  Age: 63 Year
  Sex: Female
  Weight: 46 kg

DRUGS (36)
  1. CLINDAMYCIN [Suspect]
     Active Substance: CLINDAMYCIN
     Indication: Product used for unknown indication
     Dosage: 300 MILLIGRAM, QID
     Route: 065
     Dates: start: 20221214
  2. Alphosyl [Concomitant]
     Dosage: 1 DOSAGE FORM, QD(USE DAILY)
     Route: 065
     Dates: start: 20180208
  3. AMITRIPTYLINE HYDROCHLORIDE [Concomitant]
     Active Substance: AMITRIPTYLINE HYDROCHLORIDE
     Dosage: TAKE ONE OR TWO TABLETS AT NIGHT
     Route: 065
     Dates: start: 20180208
  4. ASPIRIN [Concomitant]
     Active Substance: ASPIRIN
     Dosage: 1 DOSAGE FORM, QD
     Route: 065
     Dates: start: 20180208
  5. AZITHROMYCIN [Concomitant]
     Active Substance: AZITHROMYCIN
     Dosage: 2 DOSAGE FORM, QD(THREE TIMES A WEEK ON MO)
     Route: 065
     Dates: start: 20191111
  6. BECONASE AQ [Concomitant]
     Active Substance: BECLOMETHASONE DIPROPIONATE MONOHYDRATE
     Dosage: 2 DOSAGE FORM(USE TWO SPRAYS IN BOTH NOSTRILS)
     Route: 045
     Dates: start: 20200302
  7. BENZYDAMINE HYDROCHLORIDE [Concomitant]
     Active Substance: BENZYDAMINE HYDROCHLORIDE
     Dosage: 1 DOSAGE FORM, PRN(USE AS REQUIRED)
     Route: 065
     Dates: start: 20180208
  8. CALCIUM CARBONATE [Concomitant]
     Active Substance: CALCIUM CARBONATE
     Dosage: 1 DOSAGE FORM, BID
     Route: 065
     Dates: start: 20190820
  9. CARBOCYSTEINE [Concomitant]
     Active Substance: CARBOCYSTEINE
     Dosage: 2 DOSAGE FORM, TID
     Route: 065
     Dates: start: 20221111
  10. DERMOL [Concomitant]
     Active Substance: BENZALKONIUM CHLORIDE\CHLORHEXIDINE HYDROCHLORIDE\ISOPROPYL MYRISTATE\PARAFFIN
     Dosage: (GREY -NON-FORMULARY ) PLEASE PRESCRIBE CETRABE
     Route: 065
     Dates: start: 20221223, end: 20230120
  11. CHOLECALCIFEROL [Concomitant]
     Active Substance: CHOLECALCIFEROL
     Dosage: 1 DOSAGE FORM, QD
     Route: 065
     Dates: start: 20190820
  12. DOCUSATE SODIUM [Concomitant]
     Active Substance: DOCUSATE SODIUM
     Dosage: 2 DOSAGE FORM, BID(WHEN NEEDED FOR C)
     Route: 065
     Dates: start: 20181126
  13. DOXYCYCLINE [Concomitant]
     Active Substance: DOXYCYCLINE
     Dosage: TAKE TWO DAY ONE AND  THEN ONE DAILY FOR REST COURSE
     Route: 065
     Dates: start: 20221221, end: 20221226
  14. BUDESONIDE\FORMOTEROL [Concomitant]
     Active Substance: BUDESONIDE\FORMOTEROL
     Dosage: 2 DOSAGE FORM, BID
     Route: 055
     Dates: start: 20181207
  15. EMOLLIN [Concomitant]
     Dosage: USE AS DIRECTED
     Route: 065
     Dates: start: 20180208
  16. FAMOTIDINE [Concomitant]
     Active Substance: FAMOTIDINE
     Dosage: 1 DOSAGE FORM, QD
     Route: 065
     Dates: start: 20221017
  17. FEXOFENADINE [Concomitant]
     Active Substance: FEXOFENADINE HYDROCHLORIDE
     Indication: Hypersensitivity
     Dosage: 1 DOSAGE FORM, 11 TIMES A DAY (TO SUPPRESS ALLERGIC SYMPTOMS)
     Route: 065
     Dates: start: 20221223, end: 20230122
  18. FOLIC ACID [Concomitant]
     Active Substance: FOLIC ACID
     Dosage: 1 DOSAGE FORM, 6XW(TAKE ONE TABLET ON SIX DAYS OF THE WEEK EXCEPT)
     Route: 065
     Dates: start: 20180208
  19. HYDROCORTISONE [Concomitant]
     Active Substance: HYDROCORTISONE
     Dosage: 1 DOSAGE FORM, PRN(APPLY SPARINGLY AS DIRECTED BY DERMATOLOGIST)
     Route: 065
     Dates: start: 20180208
  20. HYDROXOCOBALAMIN [Concomitant]
     Active Substance: HYDROXOCOBALAMIN
     Dosage: 1 MILLIGRAM, ONCE IN 10 WEEKS
     Route: 065
     Dates: start: 20210608
  21. BUTYLSCOPOLAMINE BROMIDE [Concomitant]
     Active Substance: BUTYLSCOPOLAMINE BROMIDE
     Dosage: 2 DOSAGE FORM, TID
     Route: 065
     Dates: start: 20180208
  22. LANSOPRAZOLE [Concomitant]
     Active Substance: LANSOPRAZOLE
     Dosage: 1 DOSAGE FORM, QD (TAKE ONE CAPSULE ONCE A DAY)
     Route: 065
     Dates: start: 20220329
  23. LORATADINE [Concomitant]
     Active Substance: LORATADINE
     Dosage: 2 DOSAGE FORM, QD(AS DIRECTED BY DERM)
     Route: 065
     Dates: start: 20190103
  24. LOSARTAN [Concomitant]
     Active Substance: LOSARTAN
     Dosage: 1 DOSAGE FORM, QD
     Route: 065
     Dates: start: 20180208
  25. MEBEVERINE HYDROCHLORIDE [Concomitant]
     Active Substance: MEBEVERINE HYDROCHLORIDE
     Dosage: 1 DOSAGE FORM, TID(20 MINUTES BE)
     Route: 065
     Dates: start: 20180208
  26. MENTHOL [Concomitant]
     Active Substance: MENTHOL
     Dosage: 1 DOSAGE FORM, AS NECESSARY (APPLY AS NEEDED)
     Route: 065
     Dates: start: 20190502
  27. MOMETASONE [Concomitant]
     Active Substance: MOMETASONE
     Dosage: 1 DOSAGE FORM, QD(APPLY SPARINGLY DAILY WHEN NEEDED AS DIRECTED B)
     Route: 065
     Dates: start: 20180208
  28. MORPHINE SULFATE [Concomitant]
     Active Substance: MORPHINE SULFATE
     Indication: Pain
     Dosage: 2.5 MILLILITER, Q4H(2.5ML (5MG) AS NEEDED)
     Route: 065
     Dates: start: 20180208
  29. PREDNISOLONE [Concomitant]
     Active Substance: PREDNISOLONE
     Dosage: 2 MILLIGRAM, QD
     Route: 065
     Dates: start: 20180420
  30. ALBUTEROL [Concomitant]
     Active Substance: ALBUTEROL
     Indication: Asthma
     Dosage: (ASTHMA RELIEVER) INHALE ONE TO TWO PUFFS WHEN
     Route: 055
     Dates: start: 20211125
  31. SENNA [Concomitant]
     Active Substance: SENNA LEAF\SENNOSIDES\SENNOSIDES A AND B
     Dosage: (SENNOSIDES) TAKE ONE OR TWO TABLETS ONCE A DAY.
     Route: 065
     Dates: start: 20220329
  32. TACROLIMUS [Concomitant]
     Active Substance: TACROLIMUS
     Dosage: 1 DOSAGE FORM, AS NECESSARY(APPLY AS DIRECTED BY CONSULTANT)
     Route: 065
     Dates: start: 20190918
  33. CARBOMER [Concomitant]
     Active Substance: CARBOMER
     Dosage: USE IN AFFECTED EYE(S) THREE TO FOUR TIMES A DAY
     Route: 065
     Dates: start: 20180208
  34. MORPHINE SULFATE [Concomitant]
     Active Substance: MORPHINE SULFATE
     Dosage: 1 DOSAGE FORM, BID((MORPHINE SULPHATE MR) TAKE ONE CAPSULE TWICE A)
     Route: 065
     Dates: start: 20181017
  35. GAVISCON [Concomitant]
     Active Substance: ALUMINUM HYDROXIDE\MAGNESIUM CARBONATE
     Dosage: UNK, TAKE 10-20ML UP TO FOUR TIMES DAILY AFTER MEALS
     Route: 065
     Dates: start: 20190711
  36. Hydromol [Concomitant]
     Dosage: 1 DOSAGE FORM, AS NECESSARY (APPLY AS DIRECTED BY DERMATOLOGIST)
     Route: 065
     Dates: start: 20180208

REACTIONS (1)
  - Erythema [Recovered/Resolved]

NARRATIVE: CASE EVENT DATE: 20221229
